FAERS Safety Report 9916845 (Version 1)
Quarter: 2014Q1

REPORT INFORMATION
  Report Type: Spontaneous
  Country: IT (occurrence: IT)
  Receive Date: 20140221
  Receipt Date: 20140221
  Transmission Date: 20141002
  Serious: Yes (Other)
  Sender: FDA-Public Use
  Company Number: IT-ENDO PHARMACEUTICALS INC.-FORT20140036

PATIENT
  Age: 46 Year
  Sex: Male

DRUGS (1)
  1. FORTESTA [Suspect]
     Indication: BLOOD TESTOSTERONE DECREASED
     Dosage: 1 DOSAGE FORM
     Route: 061
     Dates: start: 20130927, end: 20130927

REACTIONS (2)
  - Paraesthesia [Recovering/Resolving]
  - Throat tightness [Recovering/Resolving]
